FAERS Safety Report 5831060-9 (Version None)
Quarter: 2008Q3

REPORT INFORMATION
  Report Type: 
  Country: None (occurrence: None)
  Receive Date: 20080801
  Receipt Date: 20080324
  Transmission Date: 20090109
  Serious: Yes (Other)
  Sender: FDA-Public Use
  Company Number: US-BRISTOL-MYERS SQUIBB COMPANY-14124192

PATIENT
  Age: 67 Year
  Sex: Male
  Weight: 87 kg

DRUGS (4)
  1. WARFARIN SODIUM [Suspect]
     Indication: ATRIAL FIBRILLATION
     Dates: start: 20050901, end: 20050917
  2. ASPIRIN [Suspect]
     Indication: STENT PLACEMENT
     Dates: start: 20050401
  3. PLAVIX [Suspect]
     Indication: STENT PLACEMENT
     Dates: start: 20050401
  4. LOVENOX [Suspect]
     Route: 058
     Dates: start: 20050917, end: 20050917

REACTIONS (3)
  - CEREBRAL HAEMORRHAGE [None]
  - INTERNATIONAL NORMALISED RATIO FLUCTUATION [None]
  - MENTAL STATUS CHANGES [None]
